FAERS Safety Report 4742257-3 (Version None)
Quarter: 2005Q3

REPORT INFORMATION
  Report Type: 
  Country: None (occurrence: None)
  Receive Date: 20050811
  Receipt Date: 20050329
  Transmission Date: 20060218
  Serious: Yes (Other)
  Sender: FDA-Public Use
  Company Number: US-GLAXOSMITHKLINE-A0551732A

PATIENT
  Age: 62 Year
  Sex: Female

DRUGS (6)
  1. PAXIL CR [Suspect]
     Indication: DEPRESSION
     Dosage: 25MG PER DAY
     Route: 048
     Dates: end: 20050301
  2. PAROXETINE HYDROCHLORIDE [Suspect]
     Indication: DRUG USE FOR UNKNOWN INDICATION
     Dosage: 20MG PER DAY
     Route: 048
  3. REMERON [Suspect]
     Dosage: 30MG PER DAY
  4. LIPITOR [Concomitant]
  5. PRANDIN [Concomitant]
  6. ZYRTEC [Concomitant]

REACTIONS (9)
  - AURICULAR SWELLING [None]
  - DISTURBANCE IN ATTENTION [None]
  - DIZZINESS [None]
  - HALLUCINATION [None]
  - ILL-DEFINED DISORDER [None]
  - MOOD SWINGS [None]
  - NAUSEA [None]
  - OEDEMA PERIPHERAL [None]
  - TREMOR [None]
